FAERS Safety Report 24065454 (Version 1)
Quarter: 2024Q3

REPORT INFORMATION
  Report Type: Spontaneous
  Country: US (occurrence: US)
  Receive Date: 20240709
  Receipt Date: 20240709
  Transmission Date: 20241017
  Serious: No
  Sender: MYLAN
  Company Number: US-MYLANLABS-2024M1058409

PATIENT
  Age: 66 Year
  Sex: Male

DRUGS (1)
  1. BREYNA [Suspect]
     Active Substance: BUDESONIDE\FORMOTEROL FUMARATE
     Indication: Chronic obstructive pulmonary disease
     Dosage: UNK
     Route: 055
     Dates: end: 20240623

REACTIONS (9)
  - Abdominal pain [Unknown]
  - Back disorder [Unknown]
  - Myalgia [Unknown]
  - Arthralgia [Unknown]
  - Pain [Unknown]
  - Formication [Unknown]
  - Joint lock [Unknown]
  - Muscle spasms [Unknown]
  - Product substitution issue [Unknown]
